FAERS Safety Report 5159274-4 (Version None)
Quarter: 2006Q4

REPORT INFORMATION
  Report Type: 
  Country: None (occurrence: None)
  Receive Date: 20061120
  Receipt Date: 20061107
  Transmission Date: 20070319
  Serious: Yes (Other)
  Sender: FDA-Public Use
  Company Number: 200610360BBE

PATIENT

DRUGS (1)
  1. IVIG (MANUFACTURER UNKNOWN) [Suspect]

REACTIONS (3)
  - NEPHROPATHY TOXIC [None]
  - NEPHROTIC SYNDROME [None]
  - RENAL FAILURE ACUTE [None]
